FAERS Safety Report 14258470 (Version 3)
Quarter: 2018Q1

REPORT INFORMATION
  Report Type: Spontaneous
  Country: US (occurrence: US)
  Receive Date: 20171207
  Receipt Date: 20180129
  Transmission Date: 20180508
  Serious: No
  Sender: FDA-Public Use
  Company Number: US-PFIZER INC-2017520840

PATIENT
  Age: 36 Year
  Sex: Female

DRUGS (1)
  1. EUCRISA [Suspect]
     Active Substance: CRISABOROLE
     Indication: ECZEMA
     Dosage: 5 MG, 2X/DAY (APPLY TO AFFECTED AREAS TWICE A DAY)
     Dates: start: 201712, end: 201712

REACTIONS (4)
  - Skin disorder [Recovered/Resolved]
  - Skin fissures [Not Recovered/Not Resolved]
  - Dermatitis [Not Recovered/Not Resolved]
  - Erythema [Not Recovered/Not Resolved]

NARRATIVE: CASE EVENT DATE: 201712
